FAERS Safety Report 8951822 (Version 2)
Quarter: 2013Q1

REPORT INFORMATION
  Report Type: Spontaneous
  Country: US (occurrence: US)
  Receive Date: 20121204
  Receipt Date: 20130102
  Transmission Date: 20140127
  Serious: No
  Sender: FDA-Public Use
  Company Number: US-AMGEN-USASP2012069312

PATIENT
  Age: 41 Year
  Sex: Female
  Weight: 58.96 kg

DRUGS (4)
  1. ENBREL [Suspect]
     Indication: RHEUMATOID ARTHRITIS
     Dosage: 50 MG, QWK
     Route: 058
     Dates: start: 20120717
  2. IBUPROFEN [Concomitant]
     Dosage: 200 MG, UNK
     Route: 048
  3. Z-PAK [Concomitant]
     Dosage: UNK
     Route: 048
  4. BENADRYL                           /00000402/ [Concomitant]
     Dosage: UNK
     Route: 048

REACTIONS (4)
  - Oedema peripheral [Not Recovered/Not Resolved]
  - Ear infection [Recovered/Resolved]
  - Pharyngitis streptococcal [Not Recovered/Not Resolved]
  - Sinusitis [Recovered/Resolved]
